FAERS Safety Report 16982195 (Version 1)
Quarter: 2019Q4

REPORT INFORMATION
  Report Type: Spontaneous
  Country: AT (occurrence: AT)
  Receive Date: 20191101
  Receipt Date: 20191101
  Transmission Date: 20200122
  Serious: Yes (Hospitalization)
  Sender: FDA-Public Use
  Company Number: AT-TEVA-2019-AT-1129976

PATIENT
  Age: 28 Year
  Sex: Female

DRUGS (4)
  1. ATORVASTATIN ACTAVIS 20 MG FILMTABLETTEN [Concomitant]
     Dosage: 20 MG
     Route: 048
  2. METFORMIN HEXAL 500 MG FILMTABLETTEN [Concomitant]
     Dosage: 500 MG
     Route: 048
  3. OLEOVIT D3 TROPFEN [Concomitant]
  4. NAPROBENE 500 MG - FILMTABLETTEN [Suspect]
     Active Substance: NAPROXEN
     Dosage: 500 MG
     Route: 048
     Dates: start: 20190716, end: 20190716

REACTIONS (3)
  - Type IV hypersensitivity reaction [Recovered/Resolved]
  - Fixed eruption [Recovered/Resolved]
  - Lip swelling [Recovered/Resolved]

NARRATIVE: CASE EVENT DATE: 20190716
